FAERS Safety Report 7804595 (Version 4)
Quarter: 2013Q4

REPORT INFORMATION
  Report Type: Report from Study
  Country: CZ (occurrence: CZ)
  Receive Date: 20110208
  Receipt Date: 20131126
  Transmission Date: 20140711
  Serious: Yes (Hospitalization)
  Sender: FDA-Public Use
  Company Number: CZ-PFIZER INC-2011025605

PATIENT
  Age: 55 Year
  Sex: Female
  Weight: 73 kg

DRUGS (2)
  1. SUNITINIB MALATE [Suspect]
     Indication: METASTATIC RENAL CELL CARCINOMA
     Dosage: 50 MG, UNK
     Dates: start: 201012, end: 20110817
  2. ZOMETA [Concomitant]
     Dosage: 4 MG, UNK
     Dates: start: 2010

REACTIONS (12)
  - Thrombosis [Unknown]
  - Thrombocytopenia [Unknown]
  - Nausea [Unknown]
  - Asthenia [Not Recovered/Not Resolved]
  - Dyspnoea [Unknown]
  - Yellow skin [Unknown]
  - Heart rate increased [Unknown]
  - Erythema [Unknown]
  - Abdominal discomfort [Unknown]
  - Decreased appetite [Unknown]
  - Mucosal inflammation [Not Recovered/Not Resolved]
  - Aphthous stomatitis [Unknown]
